FAERS Safety Report 11672817 (Version 6)
Quarter: 2015Q4

REPORT INFORMATION
  Report Type: Spontaneous
  Country: US (occurrence: US)
  Receive Date: 20151028
  Receipt Date: 20151123
  Transmission Date: 20160304
  Serious: Yes (Other)
  Sender: FDA-Public Use
  Company Number: CHPA2015US012630

PATIENT
  Age: 73 Year
  Sex: Female

DRUGS (4)
  1. SUDAFED [Concomitant]
     Active Substance: PSEUDOEPHEDRINE HYDROCHLORIDE
     Indication: SINUS DISORDER
  2. VOLTAREN [Suspect]
     Active Substance: DICLOFENAC SODIUM
     Indication: MUSCULOSKELETAL PAIN
  3. VOLTAREN [Suspect]
     Active Substance: DICLOFENAC SODIUM
     Indication: NECK PAIN
     Dosage: 4 G, BID
     Route: 061
     Dates: start: 20151022
  4. VOLTAREN [Suspect]
     Active Substance: DICLOFENAC SODIUM
     Indication: BACK PAIN
     Dosage: 4 G, QID
     Route: 061
     Dates: start: 2013

REACTIONS (11)
  - Product use issue [Unknown]
  - Drug administered at inappropriate site [Unknown]
  - Tooth abscess [Recovered/Resolved]
  - Sinus disorder [Recovered/Resolved]
  - Dizziness [Unknown]
  - Musculoskeletal pain [Recovered/Resolved]
  - Therapeutic response unexpected [Unknown]
  - Trigeminal neuralgia [Recovered/Resolved]
  - Tooth fracture [Recovered/Resolved]
  - Neck pain [Recovered/Resolved]
  - Inappropriate schedule of drug administration [Unknown]

NARRATIVE: CASE EVENT DATE: 2013
